FAERS Safety Report 9646448 (Version 3)
Quarter: 2015Q2

REPORT INFORMATION
  Report Type: Spontaneous
  Country: GR (occurrence: GR)
  Receive Date: 20131025
  Receipt Date: 20150512
  Transmission Date: 20150821
  Serious: Yes (Other)
  Sender: FDA-Public Use
  Company Number: PHHY2013GR117991

PATIENT
  Age: 40 Year
  Sex: Male

DRUGS (2)
  1. AZATHIOPRINE. [Concomitant]
     Active Substance: AZATHIOPRINE
     Indication: MYASTHENIA GRAVIS
     Route: 065
  2. PREDNISOLONE. [Suspect]
     Active Substance: PREDNISOLONE
     Indication: MYASTHENIA GRAVIS
     Route: 048

REACTIONS (6)
  - Visual acuity reduced [Recovered/Resolved]
  - Chorioretinopathy [Recovered/Resolved]
  - Detachment of macular retinal pigment epithelium [Recovered/Resolved]
  - Subretinal fluid [Recovered/Resolved]
  - Metamorphopsia [Recovered/Resolved]
  - Vision blurred [Recovered/Resolved]
